FAERS Safety Report 9122362 (Version 1)
Quarter: 2013Q1

REPORT INFORMATION
  Report Type: Report from Study
  Country: CA (occurrence: CA)
  Receive Date: 20130114
  Receipt Date: 20130114
  Transmission Date: 20140127
  Serious: Yes (Life-Threatening)
  Sender: FDA-Public Use
  Company Number: CA-JNJFOC-20130101987

PATIENT
  Age: 32 Year
  Sex: Male

DRUGS (5)
  1. REMICADE [Suspect]
     Indication: CROHN^S DISEASE
     Dosage: DRUG DOSING INTERVAL: 0, 2 AND 6 WEEKS,
     Route: 042
     Dates: start: 20121218
  2. REMICADE [Suspect]
     Indication: CROHN^S DISEASE
     Dosage: 400 MG WAS DILUTED TO 290 CC IN TOTAL
     Route: 042
     Dates: start: 20130103, end: 20130103
  3. REMICADE [Suspect]
     Indication: CROHN^S DISEASE
     Dosage: THE PATIENT HAD 3 INFUSIONS IN 2003
     Route: 042
     Dates: start: 2003
  4. PREDNISONE [Concomitant]
     Route: 065
  5. PERCOCET [Concomitant]
     Route: 065

REACTIONS (9)
  - Diarrhoea haemorrhagic [Recovered/Resolved]
  - Pallor [Recovered/Resolved]
  - Vomiting [Recovered/Resolved]
  - Chills [Recovered/Resolved]
  - Nausea [Recovered/Resolved]
  - Dyspnoea [Recovered/Resolved]
  - Infusion related reaction [Recovered/Resolved]
  - Somnolence [Recovered/Resolved]
  - Abdominal pain [Recovered/Resolved]
